FAERS Safety Report 8613462-0 (Version None)
Quarter: 2012Q3

REPORT INFORMATION
  Report Type: 
  Country: None (occurrence: None)
  Receive Date: 20120823
  Receipt Date: 20120807
  Transmission Date: 20120928
  Serious: Yes (Life-Threatening)
  Sender: FDA-Public Use
  Company Number: US-009507513-1208USA004919

PATIENT

DRUGS (16)
  1. VINCRISTINE [Suspect]
     Dosage: 0.05 MG/KG/DAY ON DAYS 4 11 AND 18
     Route: 042
     Dates: start: 20120702
  2. ETOPOSIDE [Suspect]
     Dosage: 2.5 MG/KG/DAY ON DAYS 4,5 AND 6
     Route: 042
     Dates: start: 20120702, end: 20120704
  3. FUROSEMIDE [Suspect]
     Dosage: 5 MG, QD
     Route: 042
     Dates: start: 20120728, end: 20120729
  4. VINCRISTINE [Suspect]
     Indication: MEDULLOBLASTOMA
     Dosage: 0.05 MG/KG/DAY ON DAYS 4 11 AND 18
     Route: 042
     Dates: start: 20120723
  5. CISPLATIN [Suspect]
     Dosage: 3.5 MG/KG/DAY OVER 6 HOURS ON DAY 4
     Route: 042
     Dates: start: 20120727
  6. CYCLOPHOSPHAMIDE [Suspect]
     Indication: MEDULLOBLASTOMA
     Dosage: 60 MG/KG/DAY OVER 1 HOUR ON DAY 5 AND 6
     Route: 042
     Dates: start: 20120727, end: 20120728
  7. VORINOSTAT [Suspect]
     Dosage: 230 MG/M2/DOSE ON DAYS 1-4
     Route: 048
     Dates: start: 20120629
  8. CISPLATIN [Suspect]
     Indication: MEDULLOBLASTOMA
     Dosage: 3.5 MG/KG/DAY OVER 6 HOURS ON DAY 4
     Route: 042
     Dates: start: 20120726, end: 20120726
  9. ETOPOSIDE [Suspect]
     Dosage: 2.5 MG/KG/DAY ON DAYS 4,5 AND 6
     Route: 042
     Dates: start: 20120729
  10. VORINOSTAT [Suspect]
     Indication: MEDULLOBLASTOMA
     Dosage: 230 MG/M2/DOSE ON DAYS 1-4
     Route: 048
     Dates: start: 20120723, end: 20120725
  11. ISOTRETINOIN [Suspect]
     Indication: MEDULLOBLASTOMA
     Dosage: 80 MG/M2/DOSE, BID ON DAYS 1-4
     Route: 048
     Dates: start: 20120723, end: 20120727
  12. ISOTRETINOIN [Suspect]
     Dosage: 80 MG/M2/DOSE, BID ON DAYS 1-4
     Route: 048
     Dates: start: 20120629
  13. VINCRISTINE [Suspect]
     Dosage: 0.05 MG/KG/DAY ON DAYS 4 11 AND 18
     Route: 042
     Dates: start: 20120727
  14. ETOPOSIDE [Suspect]
     Indication: MEDULLOBLASTOMA
     Dosage: 2.5 MG/KG/DAY ON DAYS 4,5 AND 6
     Route: 042
     Dates: start: 20120726, end: 20120728
  15. CISPLATIN [Suspect]
     Dosage: 3.5 MG/KG/DAY OVER 6 HOURS ON DAY 4
     Route: 042
     Dates: start: 20120702, end: 20120702
  16. CYCLOPHOSPHAMIDE [Suspect]
     Dosage: 60 MG/KG/DAY OVER 1 HOUR ON DAY 5 AND 6
     Route: 042
     Dates: start: 20120703, end: 20120704

REACTIONS (3)
  - WHITE BLOOD CELL COUNT DECREASED [None]
  - NEUTROPHIL COUNT DECREASED [None]
  - HYPOKALAEMIA [None]
